FAERS Safety Report 21111302 (Version 2)
Quarter: 2022Q3

REPORT INFORMATION
  Report Type: Spontaneous
  Country: BR (occurrence: BR)
  Receive Date: 20220721
  Receipt Date: 20220727
  Transmission Date: 20221027
  Serious: Yes (Other)
  Sender: FDA-Public Use
  Company Number: BR-GLAXOSMITHKLINE-BR2022AMR108679

PATIENT

DRUGS (7)
  1. POLYMYXIN [Suspect]
     Active Substance: POLYMYXIN
     Indication: Urosepsis
     Dosage: UNK
     Dates: start: 20220519, end: 20220527
  2. FLUTICASONE FUROATE [Suspect]
     Active Substance: FLUTICASONE FUROATE
     Indication: Pharyngeal disorder
     Dosage: UNK275MCG
     Dates: start: 20220529
  3. LINEZOLID [Suspect]
     Active Substance: LINEZOLID
     Indication: Urosepsis
     Dosage: UNK
     Dates: start: 20220517, end: 20220526
  4. LEVOFLOXACIN [Suspect]
     Active Substance: LEVOFLOXACIN
     Indication: Urosepsis
     Dosage: UNK
     Dates: start: 20220522
  5. MICAFUNGIN [Suspect]
     Active Substance: MICAFUNGIN
     Indication: Urosepsis
     Dosage: UNK
     Dates: start: 20220519
  6. BACTRIM [Suspect]
     Active Substance: SULFAMETHOXAZOLE\TRIMETHOPRIM
     Indication: Urosepsis
     Dosage: UNK
     Dates: start: 20220525, end: 20220526
  7. MEROPENEM [Suspect]
     Active Substance: MEROPENEM
     Indication: Urosepsis
     Dosage: UNK

REACTIONS (5)
  - Ototoxicity [Unknown]
  - Deafness [Unknown]
  - Endotracheal intubation [Unknown]
  - Product prescribing issue [Unknown]
  - Product use in unapproved indication [Unknown]

NARRATIVE: CASE EVENT DATE: 20220101
